FAERS Safety Report 8943220 (Version 1)
Quarter: 2012Q4

REPORT INFORMATION
  Report Type: Spontaneous
  Country: US (occurrence: None)
  Receive Date: 20121121
  Receipt Date: 20121121
  Transmission Date: 20130627
  Serious: Yes (Life-Threatening)
  Sender: FDA-Public Use
  Company Number: 001403395A

PATIENT
  Age: 26 Year
  Sex: Female

DRUGS (3)
  1. PROACTIVE SOLUTION CLEANING BAR [Suspect]
     Indication: ACNE
     Dosage: once daily dermal
     Dates: start: 20121006, end: 20121022
  2. UNSPECIFIED INGREDIENT MEDICATION [Suspect]
     Indication: ACNE
     Dosage: once daily dermal
     Dates: start: 20121006, end: 20121022
  3. PROACTIV REFINING MASK [Suspect]
     Indication: ACNE
     Dosage: once daily dermal
     Dates: start: 20121006, end: 20121022

REACTIONS (6)
  - Hypersensitivity [None]
  - Pruritus [None]
  - Swelling face [None]
  - Local swelling [None]
  - Dyspnoea [None]
  - Throat tightness [None]
